FAERS Safety Report 11273609 (Version 1)
Quarter: 2015Q3

REPORT INFORMATION
  Report Type: Spontaneous
  Country: US (occurrence: US)
  Receive Date: 20150715
  Receipt Date: 20150715
  Transmission Date: 20151125
  Serious: Yes (Other)
  Sender: FDA-Public Use
  Company Number: US-RECKITT BENCKISER PHARMACEUTICAL, INC-RB-081145-2015

PATIENT
  Sex: Female

DRUGS (2)
  1. BUPRENORPHINE/NALOXONE [Suspect]
     Active Substance: BUPRENORPHINE\NALOXONE
     Indication: DRUG DEPENDENCE
     Dosage: 16 MG, QD; SINCE 6 OR 7 YEARS
     Route: 060
     Dates: end: 2014
  2. BUPRENORPHINE GENERIC TAB [Suspect]
     Active Substance: BUPRENORPHINE
     Indication: DRUG DEPENDENCE
     Dosage: 14 MG, QD; ONE 8 MG AND THREE 2 MG TABLETS
     Route: 060
     Dates: start: 2014

REACTIONS (2)
  - Anxiety [Recovered/Resolved]
  - Neuroma [Not Recovered/Not Resolved]
